FAERS Safety Report 15414672 (Version 1)
Quarter: 2018Q3

REPORT INFORMATION
  Report Type: Spontaneous
  Country: PT (occurrence: PT)
  Receive Date: 20180921
  Receipt Date: 20180921
  Transmission Date: 20181010
  Serious: Yes (Hospitalization)
  Sender: FDA-Public Use
  Company Number: PHHY2018PT096761

PATIENT
  Age: 23 Year
  Sex: Male

DRUGS (4)
  1. LEVOTHYROXINE. [Concomitant]
     Active Substance: LEVOTHYROXINE
     Indication: PAPILLARY THYROID CANCER
     Dosage: UNK
     Route: 065
  2. FUROSEMIDE. [Suspect]
     Active Substance: FUROSEMIDE
     Indication: PULMONARY HYPERTENSION
     Dosage: 80 MG, QD
     Route: 065
  3. CALCITRIOL. [Concomitant]
     Active Substance: CALCITRIOL
     Indication: PAPILLARY THYROID CANCER
     Dosage: UNK
     Route: 065
  4. APC?CALCIUM CARBONATE [Concomitant]
     Indication: PAPILLARY THYROID CANCER
     Dosage: UNK
     Route: 065

REACTIONS (7)
  - Trousseau^s sign [Recovered/Resolved]
  - Cardiac failure acute [Recovered/Resolved]
  - Dyspnoea [Recovering/Resolving]
  - Irritability [Recovered/Resolved]
  - Hypocalcaemia [Recovered/Resolved]
  - Muscle spasms [Recovered/Resolved]
  - Diplopia [Recovered/Resolved]
